FAERS Safety Report 8345543-3 (Version None)
Quarter: 2012Q2

REPORT INFORMATION
  Report Type: 
  Country: None (occurrence: None)
  Receive Date: 20120508
  Receipt Date: 20120425
  Transmission Date: 20120825
  Serious: Yes (Other)
  Sender: FDA-Public Use
  Company Number: CHPA2012US009924

PATIENT
  Age: 80 Year
  Sex: Female

DRUGS (1)
  1. KERI ORIGINAL [Suspect]
     Indication: DRY SKIN
     Dosage: UNK, UNK
     Route: 061
     Dates: start: 19570101

REACTIONS (7)
  - DIABETES MELLITUS [None]
  - BLOOD GLUCOSE INCREASED [None]
  - DERMATITIS [None]
  - PRURITUS [None]
  - HYPERSENSITIVITY [None]
  - RASH [None]
  - SKIN WRINKLING [None]
